FAERS Safety Report 6738778-4 (Version None)
Quarter: 2010Q2

REPORT INFORMATION
  Report Type: 
  Country: None (occurrence: None)
  Receive Date: 20100524
  Receipt Date: 20100511
  Transmission Date: 20101027
  Serious: Yes (Hospitalization)
  Sender: FDA-Public Use
  Company Number: US-WATSON-2010-06359

PATIENT
  Age: 27 Year
  Sex: Female

DRUGS (2)
  1. LORAZEPAM [Suspect]
     Indication: ANXIETY
     Dosage: 7 - 8 MG, DAILY (PRESCRIBED TO TAKE 1 TABLET QID)
     Route: 048
     Dates: start: 20100505
  2. LORAZEPAM [Suspect]
     Indication: PANIC ATTACK
     Dosage: 7 - 8 MG, DAILY
     Route: 048

REACTIONS (9)
  - ANXIETY [None]
  - CONDITION AGGRAVATED [None]
  - DRUG INEFFECTIVE [None]
  - DRUG SCREEN NEGATIVE [None]
  - INTENTIONAL SELF-INJURY [None]
  - LETHARGY [None]
  - PANIC ATTACK [None]
  - SUICIDAL BEHAVIOUR [None]
  - SUICIDAL IDEATION [None]
